FAERS Safety Report 6293048-6 (Version None)
Quarter: 2009Q3

REPORT INFORMATION
  Report Type: 
  Country: None (occurrence: None)
  Receive Date: 20090729
  Receipt Date: 20090720
  Transmission Date: 20100115
  Serious: Yes (Disabling)
  Sender: FDA-Public Use
  Company Number: ADR9922009

PATIENT
  Sex: Male

DRUGS (2)
  1. AMLODIPINE [Suspect]
     Indication: HYPERTENSION
     Dosage: 10 MG; ORAL
     Route: 048
     Dates: start: 20060217, end: 20070601
  2. BENDROFLUMETHIAZIDE 2.5 MG [Concomitant]

REACTIONS (2)
  - GINGIVAL HYPERPLASIA [None]
  - PERIODONTAL DISEASE [None]
